FAERS Safety Report 21451630 (Version 1)
Quarter: 2022Q4

REPORT INFORMATION
  Report Type: Report from Study
  Country: US (occurrence: US)
  Receive Date: 20221013
  Receipt Date: 20221013
  Transmission Date: 20230113
  Serious: Yes (Life-Threatening, Hospitalization, Other)
  Sender: FDA-Public Use
  Company Number: US-BRISTOL-MYERS SQUIBB COMPANY-2022-117599

PATIENT
  Age: 75 Year
  Sex: Male
  Weight: 70.2 kg

DRUGS (3)
  1. CARBOPLATIN [Suspect]
     Active Substance: CARBOPLATIN
     Indication: Oesophageal adenocarcinoma
     Dosage: DELAY 7 DAYS?CYCLE = 5 WEEKS, AUC OF 2 IV ON DAYS 1, 8, 15, 22, 29
     Route: 042
     Dates: start: 20220613, end: 20220711
  2. NIVOLUMAB [Suspect]
     Active Substance: NIVOLUMAB
     Indication: Oesophageal adenocarcinoma
     Dosage: DELAY 14 DAYS?CYCLE = 5 WEEKS, 240 MG IV ON DAYS 1, 15
     Route: 065
     Dates: start: 20220613, end: 20220627
  3. TAXOL [Suspect]
     Active Substance: PACLITAXEL
     Indication: Oesophageal adenocarcinoma
     Dosage: DELAY: 7 DAYS?CYCLE = 5 WEEKS, 50 MG/M2 IV ON DAYS 1, 8, 15, 22, 29
     Route: 065
     Dates: start: 20220613, end: 20220711

REACTIONS (6)
  - Atrial fibrillation [Unknown]
  - Septic shock [Unknown]
  - Necrotising oesophagitis [Unknown]
  - Respiratory failure [Recovering/Resolving]
  - Post procedural haemorrhage [Unknown]
  - Cardiac failure [Unknown]

NARRATIVE: CASE EVENT DATE: 20220912
